FAERS Safety Report 25228060 (Version 1)
Quarter: 2025Q2

REPORT INFORMATION
  Report Type: Spontaneous
  Country: US (occurrence: US)
  Receive Date: 20250423
  Receipt Date: 20250423
  Transmission Date: 20250717
  Serious: No
  Sender: AUROBINDO
  Company Number: US-AUROBINDO-AUR-APL-2024-038965

PATIENT

DRUGS (3)
  1. SPIRONOLACTONE [Suspect]
     Active Substance: SPIRONOLACTONE
     Indication: Product used for unknown indication
     Dosage: 50 MILLIGRAM, 3 TIMES A DAY
     Route: 065
  2. SPIRONOLACTONE [Suspect]
     Active Substance: SPIRONOLACTONE
     Dosage: 50 MILLIGRAM, TWO TIMES A DAY
     Route: 065
  3. SPIRONOLACTONE [Suspect]
     Active Substance: SPIRONOLACTONE
     Dosage: 50 MILLIGRAM, ONCE A DAY
     Route: 065

REACTIONS (5)
  - Dizziness [Recovered/Resolved]
  - Sleep disorder [Recovered/Resolved]
  - Heart rate increased [Unknown]
  - Tremor [Unknown]
  - Product substitution issue [Unknown]
